FAERS Safety Report 11596760 (Version 3)
Quarter: 2015Q4

REPORT INFORMATION
  Report Type: Report from Study
  Country: US (occurrence: US)
  Receive Date: 20151006
  Receipt Date: 20151109
  Transmission Date: 20160304
  Serious: No
  Sender: FDA-Public Use
  Company Number: US-EISAI MEDICAL RESEARCH-EC-2015-010808

PATIENT
  Age: 72 Year
  Sex: Female
  Weight: 79.7 kg

DRUGS (15)
  1. HYDROCHLOROTHIAZIDE. [Concomitant]
     Active Substance: HYDROCHLOROTHIAZIDE
     Route: 048
     Dates: start: 20110223
  2. MULTIVITAMIN [Concomitant]
     Active Substance: VITAMINS
     Route: 048
     Dates: start: 20061011
  3. VITAMIN C [Concomitant]
     Active Substance: ASCORBIC ACID
     Route: 048
     Dates: start: 20050802
  4. BISOPROLOL [Concomitant]
     Active Substance: BISOPROLOL
     Route: 048
     Dates: start: 20110223
  5. FLAXSEED [Concomitant]
     Active Substance: FLAX SEED
     Route: 048
     Dates: start: 2004
  6. FISH OIL [Concomitant]
     Active Substance: FISH OIL
     Route: 048
     Dates: start: 2004
  7. CLOPIDOGREL [Concomitant]
     Active Substance: CLOPIDOGREL BISULFATE
     Route: 048
     Dates: start: 20140619
  8. CINNAMON. [Concomitant]
     Active Substance: CINNAMON
     Route: 048
     Dates: start: 2010
  9. SELENIUM [Concomitant]
     Active Substance: SELENIUM
     Route: 048
     Dates: start: 1998
  10. VITAMIN D [Concomitant]
     Active Substance: CHOLECALCIFEROL
     Route: 048
     Dates: start: 20061011
  11. IBUPROFEN. [Concomitant]
     Active Substance: IBUPROFEN
     Route: 048
     Dates: start: 2009
  12. TURMERIC [Concomitant]
     Active Substance: TURMERIC
     Route: 048
     Dates: start: 2004
  13. LORCASERIN [Suspect]
     Active Substance: LORCASERIN HYDROCHLORIDE
     Indication: WEIGHT CONTROL
     Route: 048
     Dates: start: 20140924, end: 2015
  14. VITAMIN B12 [Concomitant]
     Active Substance: CYANOCOBALAMIN
     Route: 048
     Dates: start: 20150506
  15. CALCIUM [Concomitant]
     Active Substance: CALCIUM
     Route: 048
     Dates: start: 20061011

REACTIONS (1)
  - Bundle branch block [Recovered/Resolved]

NARRATIVE: CASE EVENT DATE: 20150923
